FAERS Safety Report 8392223-4 (Version None)
Quarter: 2012Q2

REPORT INFORMATION
  Report Type: 
  Country: None (occurrence: None)
  Receive Date: 20120529
  Receipt Date: 20120522
  Transmission Date: 20120825
  Serious: Yes (Hospitalization)
  Sender: FDA-Public Use
  Company Number: FR-PFIZER INC-2012123204

PATIENT
  Age: 13 Year
  Sex: Male

DRUGS (11)
  1. CERUBIDINE [Suspect]
     Indication: ACUTE LYMPHOCYTIC LEUKAEMIA
     Dosage: UNK
     Route: 042
     Dates: start: 20110916, end: 20110930
  2. BACTRIM DS [Concomitant]
     Dosage: UNK, THREE TIMES WEEKLY
     Route: 048
     Dates: start: 20110916
  3. AMIKACIN [Concomitant]
     Dosage: UNK
     Route: 042
     Dates: start: 20110909, end: 20110910
  4. FASTURTEC [Concomitant]
     Dosage: UNK
     Route: 042
  5. PREDNISOLONE [Concomitant]
     Dosage: UNK
     Route: 048
     Dates: end: 20111018
  6. METHOTREXATE [Suspect]
     Indication: ACUTE LYMPHOCYTIC LEUKAEMIA
     Dosage: UNK
     Route: 037
     Dates: start: 20110909, end: 20111003
  7. KIDROLASE [Suspect]
     Indication: ACUTE LYMPHOCYTIC LEUKAEMIA
     Dosage: UNK
     Route: 042
     Dates: start: 20110920, end: 20111003
  8. HYDROCORTISONE ^UPJOHN^ [Suspect]
     Indication: ACUTE LYMPHOCYTIC LEUKAEMIA
     Dosage: UNK
     Route: 037
     Dates: start: 20110920, end: 20111003
  9. CYTARABINE [Suspect]
     Indication: ACUTE LYMPHOCYTIC LEUKAEMIA
     Dosage: UNK
     Route: 037
     Dates: start: 20110920, end: 20111003
  10. VINCRISTINE [Suspect]
     Indication: ACUTE LYMPHOCYTIC LEUKAEMIA
     Dosage: UNK
     Route: 042
     Dates: start: 20110916, end: 20110930
  11. TAZOBACTAM [Concomitant]
     Dosage: UNK
     Route: 042
     Dates: start: 20110910, end: 20110917

REACTIONS (3)
  - BACTERIAL INFECTION [None]
  - FUNGAL INFECTION [None]
  - APLASIA [None]
